FAERS Safety Report 5568308-4 (Version None)
Quarter: 2007Q4

REPORT INFORMATION
  Report Type: 
  Country: None (occurrence: None)
  Receive Date: 20071218
  Receipt Date: 20071205
  Transmission Date: 20080405
  Serious: Yes (Other)
  Sender: FDA-Public Use
  Company Number: 165126USA

PATIENT
  Age: 54 Year
  Sex: Female

DRUGS (3)
  1. METHYLPREDNISOLONE SODIUM SUCCINATE [Suspect]
  2. MYCOPHENOLATE MOFETIL [Suspect]
  3. TACROLIMUS [Suspect]

REACTIONS (3)
  - APATHY [None]
  - CHRONIC MYELOID LEUKAEMIA [None]
  - DEPRESSION [None]
